FAERS Safety Report 5067725-9 (Version None)
Quarter: 2006Q3

REPORT INFORMATION
  Report Type: 
  Country: None (occurrence: None)
  Receive Date: 20060712
  Receipt Date: 20060427
  Transmission Date: 20061208
  Serious: Yes (Other)
  Sender: FDA-Public Use
  Company Number: A03200602696

PATIENT
  Sex: Male

DRUGS (3)
  1. UROXATRAL [Suspect]
     Dosage: ORAL
     Route: 048
  2. QUINAPRIL [Concomitant]
  3. ANTIBIOTIC [Concomitant]

REACTIONS (1)
  - LOSS OF CONSCIOUSNESS [None]
